FAERS Safety Report 8131376-X (Version None)
Quarter: 2012Q1

REPORT INFORMATION
  Report Type: 
  Country: None (occurrence: None)
  Receive Date: 20120210
  Receipt Date: 20120210
  Transmission Date: 20120608
  Serious: Yes (Life-Threatening, Hospitalization)
  Sender: FDA-Public Use
  Company Number: None

PATIENT
  Age: 49 Year
  Sex: Female
  Weight: 67.9 kg

DRUGS (1)
  1. ACETAMINOPHEN AND HYDROCODONE BITARTRATE [Suspect]
     Indication: ANAPHYLACTIC REACTION
     Dosage: 1 TAB OTHER PO
     Route: 048
     Dates: start: 20110725, end: 20110727

REACTIONS (5)
  - ANGIOEDEMA [None]
  - RASH [None]
  - COUGH [None]
  - URTICARIA [None]
  - WHEEZING [None]
